FAERS Safety Report 14078241 (Version 1)
Quarter: 2017Q4

REPORT INFORMATION
  Report Type: Spontaneous
  Country: US (occurrence: None)
  Receive Date: 20171012
  Receipt Date: 20171012
  Transmission Date: 20180321
  Serious: No
  Sender: FDA-Public Use
  Company Number: None

PATIENT

DRUGS (2)
  1. BUPIVACAINE HCL [Suspect]
     Active Substance: BUPIVACAINE HYDROCHLORIDE
     Dosage: DOSAGE FORM - INJECTABLE?ADM ROUTE - INJECTION?TYPE - SINGLE DOSE VIAL?SIZE - 30 ML
  2. BUPIVICAINE HCL [Suspect]
     Active Substance: BUPIVACAINE HYDROCHLORIDE
     Dosage: DOSAGE FORM - INJECTABLE?ADM ROUTE - INJECTION?TYPE - SINGLE DOSE VIAL?SIZE - 30 ML

REACTIONS (1)
  - Product packaging confusion [None]
